FAERS Safety Report 15739726 (Version 1)
Quarter: 2018Q4

REPORT INFORMATION
  Report Type: Spontaneous
  Country: US (occurrence: US)
  Receive Date: 20181204
  Receipt Date: 20181204
  Transmission Date: 20190205
  Serious: Yes (Other)
  Sender: FDA-Public Use
  Company Number: None

PATIENT
  Age: 34 Year
  Sex: Female

DRUGS (3)
  1. NORMAL SALINE [Concomitant]
     Active Substance: SODIUM CHLORIDE
     Dates: start: 20181203, end: 20181203
  2. IRON SUCROSE [Concomitant]
     Active Substance: IRON SUCROSE
     Dates: start: 20181203, end: 20181203
  3. IRON SUCROSE [Suspect]
     Active Substance: IRON SUCROSE
     Indication: CHRONIC KIDNEY DISEASE
     Dosage: ?          OTHER FREQUENCY:WEEKLY;?
     Route: 040
     Dates: start: 20181203

REACTIONS (2)
  - Hypotension [None]
  - Nausea [None]

NARRATIVE: CASE EVENT DATE: 20181203
